FAERS Safety Report 9306592 (Version 2)
Quarter: 2013Q3

REPORT INFORMATION
  Report Type: Report from Study
  Country: US (occurrence: US)
  Receive Date: 20130523
  Receipt Date: 20130806
  Transmission Date: 20140515
  Serious: Yes (Other)
  Sender: FDA-Public Use
  Company Number: US-TEVA-407173USA

PATIENT
  Age: 32 Year
  Sex: Female

DRUGS (2)
  1. CLARAVIS [Suspect]
     Route: 048
     Dates: start: 20130211, end: 20130327
  2. ORAL CONTRACEPTIVE NOS [Concomitant]

REACTIONS (1)
  - Unintended pregnancy [Recovered/Resolved]
